FAERS Safety Report 12131522 (Version 3)
Quarter: 2016Q2

REPORT INFORMATION
  Report Type: Spontaneous
  Country: BR (occurrence: BR)
  Receive Date: 20160301
  Receipt Date: 20160408
  Transmission Date: 20160815
  Serious: Yes (Hospitalization, Other)
  Sender: FDA-Public Use
  Company Number: BR-PFIZER INC-2012068399

PATIENT
  Age: 68 Year
  Sex: Female
  Weight: 53 kg

DRUGS (18)
  1. BONVIVA [Concomitant]
     Active Substance: IBANDRONATE SODIUM
     Indication: BONE DISORDER
  2. LIPITOR [Concomitant]
     Active Substance: ATORVASTATIN CALCIUM
     Indication: BLOOD TRIGLYCERIDES ABNORMAL
     Dosage: ONE TABLET , DAILY
     Dates: start: 2010, end: 2015
  3. LYRICA [Suspect]
     Active Substance: PREGABALIN
     Indication: MIGRAINE
     Dosage: 300 MG, DAILY
     Route: 048
     Dates: start: 2015
  4. DOSTINEX [Concomitant]
     Active Substance: CABERGOLINE
     Dosage: 0.5 MG, EVERY 20 DAYS
  5. LYRICA [Suspect]
     Active Substance: PREGABALIN
     Dosage: 150 MG, TWICE A DAY
     Route: 048
  6. DOSTINEX [Concomitant]
     Active Substance: CABERGOLINE
     Indication: HYPOTHYROIDISM
     Dosage: 0.5 MG,EVERY 10 DAYS
     Dates: start: 2011
  7. LIPITOR [Concomitant]
     Active Substance: ATORVASTATIN CALCIUM
     Indication: BLOOD CHOLESTEROL ABNORMAL
     Dosage: ONE TABLET ONCE DAILY
     Dates: start: 20040518
  8. CORTISONE [Concomitant]
     Active Substance: CORTISONE\HYDROCORTISONE
  9. ATORVASTATIN [Concomitant]
     Active Substance: ATORVASTATIN
     Indication: BLOOD CHOLESTEROL ABNORMAL
     Dosage: UNK
     Dates: start: 2015
  10. LEXAPRO [Concomitant]
     Active Substance: ESCITALOPRAM OXALATE
     Indication: SLEEP DISORDER
     Dosage: UNK
  11. ATORVASTATIN [Concomitant]
     Active Substance: ATORVASTATIN
     Indication: BLOOD TRIGLYCERIDES ABNORMAL
  12. LYRICA [Suspect]
     Active Substance: PREGABALIN
     Indication: PAIN
     Dosage: 300 MG (TWO ^TABLETS^ OF 150MG), 2X/DAY
     Route: 048
     Dates: start: 2012, end: 2015
  13. CABERGOLINE. [Concomitant]
     Active Substance: CABERGOLINE
     Dosage: ONCE EVERY 10 DAYS
  14. BONVIVA [Concomitant]
     Active Substance: IBANDRONATE SODIUM
     Indication: BONE PAIN
     Dosage: ONE TABLET ONCE MONTHLY
     Dates: end: 201511
  15. DOSTINEX [Concomitant]
     Active Substance: CABERGOLINE
     Indication: BLOOD PROLACTIN INCREASED
     Dosage: EVERY 15 DAYS
  16. DOSTINEX [Concomitant]
     Active Substance: CABERGOLINE
     Dosage: EVERY 20 DAYS
  17. SOMALGIN [Concomitant]
     Active Substance: ASPIRIN\DIHYDROXYALUMINUM AMINOACETATE ANHYDROUS\MAGNESIUM CARBONATE
     Indication: CARDIAC DISORDER
     Dosage: UNK
     Dates: end: 201602
  18. LEXOTAN [Concomitant]
     Active Substance: BROMAZEPAM

REACTIONS (9)
  - Phlebitis [Unknown]
  - Spinal pain [Unknown]
  - Back pain [Unknown]
  - Thrombosis [Unknown]
  - Pituitary tumour [Unknown]
  - Intentional product use issue [Unknown]
  - Pneumonia [Recovered/Resolved]
  - Weight increased [Not Recovered/Not Resolved]
  - Intervertebral disc protrusion [Not Recovered/Not Resolved]

NARRATIVE: CASE EVENT DATE: 2014
